FAERS Safety Report 7137553-9 (Version None)
Quarter: 2010Q4

REPORT INFORMATION
  Report Type: 
  Country: None (occurrence: None)
  Receive Date: 20101206
  Receipt Date: 20101123
  Transmission Date: 20110411
  Serious: Yes (Hospitalization, Other)
  Sender: FDA-Public Use
  Company Number: US-ELI_LILLY_AND_COMPANY-US201011006486

PATIENT
  Sex: Female

DRUGS (1)
  1. ZYPREXA [Suspect]
     Dosage: 1 D/F, UNKNOWN
     Dates: start: 20010101, end: 20101115

REACTIONS (29)
  - APHASIA [None]
  - ARTHRALGIA [None]
  - BACK PAIN [None]
  - CHEST PAIN [None]
  - CONFUSIONAL STATE [None]
  - CONSTIPATION [None]
  - COORDINATION ABNORMAL [None]
  - COUGH [None]
  - CREPITATIONS [None]
  - DIPLOPIA [None]
  - DISTURBANCE IN ATTENTION [None]
  - DIZZINESS [None]
  - DRY MOUTH [None]
  - DYSARTHRIA [None]
  - DYSPHONIA [None]
  - EAR PAIN [None]
  - EYE DISORDER [None]
  - HEADACHE [None]
  - HOSPITALISATION [None]
  - HYPERVENTILATION [None]
  - MUSCLE RIGIDITY [None]
  - NASAL CONGESTION [None]
  - NUCHAL RIGIDITY [None]
  - ORAL PAIN [None]
  - OROPHARYNGEAL PAIN [None]
  - PERSONALITY CHANGE [None]
  - PNEUMONIA [None]
  - RHINORRHOEA [None]
  - ROAD TRAFFIC ACCIDENT [None]
